FAERS Safety Report 17369176 (Version 1)
Quarter: 2020Q1

REPORT INFORMATION
  Report Type: Report from Study
  Country: US (occurrence: US)
  Receive Date: 20200204
  Receipt Date: 20200204
  Transmission Date: 20200409
  Serious: Yes (Hospitalization)
  Sender: FDA-Public Use
  Company Number: NVSC2020US021625

PATIENT
  Age: 57 Year
  Sex: Female
  Weight: 77 kg

DRUGS (8)
  1. SIMULECT [Suspect]
     Active Substance: BASILIXIMAB
     Indication: TRANSPLANT
     Dosage: 20 MG, BID
     Route: 042
     Dates: start: 20190911
  2. SIMULECT [Suspect]
     Active Substance: BASILIXIMAB
     Dosage: 20 MG, BID
     Route: 042
     Dates: start: 20190916
  3. METHYLPREDNISOLONE. [Suspect]
     Active Substance: METHYLPREDNISOLONE
     Indication: TRANSPLANT
     Dosage: UNK UNK, QD
     Route: 048
     Dates: start: 20190912
  4. PROGRAF [Suspect]
     Active Substance: TACROLIMUS
     Indication: RENAL TRANSPLANT
     Dosage: UNK, Q12H
     Route: 048
     Dates: start: 20190913, end: 20191216
  5. PREDNISONE. [Suspect]
     Active Substance: PREDNISONE
     Indication: TRANSPLANT
     Dosage: UNK UNK, QD
     Route: 048
     Dates: start: 20190912
  6. PROGRAF [Suspect]
     Active Substance: TACROLIMUS
     Dosage: UNK, Q12H
     Route: 048
  7. BLESELUMAB [Suspect]
     Active Substance: BLESELUMAB
     Indication: RENAL TRANSPLANT
     Dosage: 200 MG
     Route: 042
     Dates: start: 20190911
  8. BLESELUMAB [Suspect]
     Active Substance: BLESELUMAB
     Dosage: 200 MG
     Route: 042
     Dates: start: 20190913

REACTIONS (1)
  - Polyomavirus-associated nephropathy [Not Recovered/Not Resolved]

NARRATIVE: CASE EVENT DATE: 20191231
